FAERS Safety Report 5825356-4 (Version None)
Quarter: 2008Q3

REPORT INFORMATION
  Report Type: 
  Country: None (occurrence: None)
  Receive Date: 20080728
  Receipt Date: 20080728
  Transmission Date: 20090109
  Serious: Yes (Hospitalization)
  Sender: FDA-Public Use
  Company Number: None

PATIENT
  Sex: Female

DRUGS (2)
  1. CISPLATIN [Suspect]
     Indication: OROPHARYNGEAL CANCER STAGE UNSPECIFIED
     Dosage: 100 MG/M2 IV Q3WKS
     Route: 042
     Dates: start: 20080610
  2. CETUXIMAB [Suspect]
     Indication: OROPHARYNGEAL CANCER STAGE UNSPECIFIED
     Dosage: 250 MG/M2 IV QWEEK
     Route: 042
     Dates: start: 20080325, end: 20080630

REACTIONS (1)
  - PNEUMONIA KLEBSIELLA [None]
